FAERS Safety Report 25150898 (Version 1)
Quarter: 2025Q2

REPORT INFORMATION
  Report Type: Spontaneous
  Country: US (occurrence: US)
  Receive Date: 20250402
  Receipt Date: 20250402
  Transmission Date: 20250717
  Serious: No
  Sender: SANOFI AVENTIS
  Company Number: US-SA-2025SA093901

PATIENT
  Sex: Male

DRUGS (1)
  1. DUPIXENT [Suspect]
     Active Substance: DUPILUMAB
     Indication: Eczema
     Dosage: 200 MG, QOW
     Route: 058

REACTIONS (5)
  - Injection site haemorrhage [Unknown]
  - Injection site swelling [Unknown]
  - Lack of injection site rotation [Unknown]
  - Incorrect dose administered [Unknown]
  - Intentional product misuse [Unknown]
